FAERS Safety Report 8625165-7 (Version None)
Quarter: 2012Q3

REPORT INFORMATION
  Report Type: 
  Country: None (occurrence: None)
  Receive Date: 20120827
  Receipt Date: 20120823
  Transmission Date: 20120928
  Serious: No
  Sender: FDA-Public Use
  Company Number: US-BAYER-2012-088467

PATIENT
  Sex: Female

DRUGS (1)
  1. MIRENA [Suspect]
     Indication: CONTRACEPTION
     Dosage: 20 MCG/24HR
     Route: 048
     Dates: start: 20111129, end: 20120823

REACTIONS (2)
  - DEVICE EXPULSION [None]
  - MENSTRUAL DISORDER [None]
